FAERS Safety Report 16311928 (Version 2)
Quarter: 2019Q2

REPORT INFORMATION
  Report Type: Report from Study
  Country: None (occurrence: US)
  Receive Date: 20190514
  Receipt Date: 20190619
  Transmission Date: 20190711
  Serious: Yes (Other)
  Sender: FDA-Public Use
  Company Number: US-ABBVIE-19S-163-2773981-00

PATIENT
  Age: 75 Year
  Sex: Male
  Weight: 83.99 kg

DRUGS (1)
  1. LUPRON DEPOT [Suspect]
     Active Substance: LEUPROLIDE ACETATE
     Indication: PROSTATE CANCER
     Route: 030
     Dates: start: 20170524

REACTIONS (5)
  - Stress urinary incontinence [Unknown]
  - Obesity [Unknown]
  - Abdominal pain [Unknown]
  - Pneumonia [Unknown]
  - Bladder neck obstruction [Unknown]

NARRATIVE: CASE EVENT DATE: 2017
